FAERS Safety Report 15464139 (Version 1)
Quarter: 2018Q4

REPORT INFORMATION
  Report Type: Spontaneous
  Country: US (occurrence: US)
  Receive Date: 20181004
  Receipt Date: 20181004
  Transmission Date: 20190204
  Serious: Yes (Other)
  Sender: FDA-Public Use
  Company Number: US-HORIZON-PEN-1053-2018

PATIENT
  Age: 62 Year
  Sex: Male

DRUGS (1)
  1. PENNSAID [Suspect]
     Active Substance: DICLOFENAC SODIUM
     Indication: OSTEOARTHRITIS
     Dosage: 1/2 PUMP EVERY 4 HRS AS NEEDED
     Dates: start: 201503

REACTIONS (3)
  - Insurance issue [Unknown]
  - Off label use [Unknown]
  - Foot operation [Unknown]
